FAERS Safety Report 7670749-6 (Version None)
Quarter: 2011Q3

REPORT INFORMATION
  Report Type: 
  Country: None (occurrence: None)
  Receive Date: 20110803
  Receipt Date: 20110719
  Transmission Date: 20111222
  Serious: Yes (Hospitalization)
  Sender: FDA-Public Use
  Company Number: 2011MA009092

PATIENT
  Age: 16 Year
  Sex: Female

DRUGS (2)
  1. RISPERIDONE [Suspect]
     Indication: SUICIDAL IDEATION
     Dosage: 4.5 MG; UNK;UNK
  2. CITALOPRAM HYDROBROMIDE [Suspect]
     Indication: SUICIDAL IDEATION
     Dosage: 50 MG

REACTIONS (20)
  - TORTICOLLIS [None]
  - INAPPROPRIATE SCHEDULE OF DRUG ADMINISTRATION [None]
  - STRESS [None]
  - INSOMNIA [None]
  - CACHEXIA [None]
  - GAIT DISTURBANCE [None]
  - SUICIDE ATTEMPT [None]
  - WEIGHT DECREASED [None]
  - ACTIVITIES OF DAILY LIVING IMPAIRED [None]
  - HEPATO-LENTICULAR DEGENERATION [None]
  - FACTITIOUS DISORDER [None]
  - MOVEMENT DISORDER [None]
  - ANXIETY [None]
  - CONVERSION DISORDER [None]
  - CHOREOATHETOSIS [None]
  - TREATMENT NONCOMPLIANCE [None]
  - HALLUCINATION, AUDITORY [None]
  - CONTUSION [None]
  - DYSTONIA [None]
  - SOMATOFORM DISORDER [None]
